FAERS Safety Report 18376724 (Version 1)
Quarter: 2020Q4

REPORT INFORMATION
  Report Type: Spontaneous
  Country: PL (occurrence: PL)
  Receive Date: 20201013
  Receipt Date: 20201013
  Transmission Date: 20210114
  Serious: Yes (Other)
  Sender: FDA-Public Use
  Company Number: PL-JNJFOC-20201013857

PATIENT

DRUGS (1)
  1. RIVAROXABAN [Suspect]
     Active Substance: RIVAROXABAN
     Indication: HEART TRANSPLANT
     Route: 048

REACTIONS (4)
  - Transient ischaemic attack [Unknown]
  - Haemorrhage [Unknown]
  - Product use in unapproved indication [Unknown]
  - Off label use [Unknown]
